FAERS Safety Report 7536918-0 (Version None)
Quarter: 2011Q2

REPORT INFORMATION
  Report Type: 
  Country: None (occurrence: None)
  Receive Date: 20110609
  Receipt Date: 20110509
  Transmission Date: 20111010
  Serious: Yes (Other)
  Sender: FDA-Public Use
  Company Number: US-BAYER-2011-017074

PATIENT
  Age: 23 Year
  Sex: Female
  Weight: 97.506 kg

DRUGS (6)
  1. BACTRIM DS [Concomitant]
  2. ADVIL LIQUI-GELS [Concomitant]
     Dosage: UNK UNK, PRN
  3. ACETAMINOPHEN AND HYDROCODONE BITARTRATE [Concomitant]
  4. ALBUTEROL INHALER [Concomitant]
  5. YASMIN [Suspect]
     Indication: PRODUCT USED FOR UNKNOWN INDICATION
     Dosage: UNK
     Route: 048
     Dates: start: 20040221
  6. NAPROXEN [Concomitant]
     Dosage: 550 MG, UNK

REACTIONS (3)
  - PAIN [None]
  - CHOLECYSTITIS [None]
  - GALLBLADDER INJURY [None]
